FAERS Safety Report 6929277-5 (Version None)
Quarter: 2010Q3

REPORT INFORMATION
  Report Type: 
  Country: None (occurrence: None)
  Receive Date: 20100811
  Receipt Date: 20100727
  Transmission Date: 20110219
  Serious: Yes (Disabling)
  Sender: FDA-Public Use
  Company Number: 2010-2264

PATIENT
  Age: 70 Year
  Sex: Female
  Weight: 51 kg

DRUGS (11)
  1. SOMATULINE DEPOT [Suspect]
     Indication: DIARRHOEA
     Dosage: (90 MG,1 IN 6 WK),INTRAMUSCULAR
     Route: 030
     Dates: start: 20080801, end: 20100601
  2. VIT B 12 (CYANOCOBALAMIN) [Concomitant]
  3. VIT D (ERGOCALCIFEROL) [Concomitant]
  4. RANITIDINE [Concomitant]
  5. BROMAZEPAM (BROMAZEPAM) [Concomitant]
  6. SIMVASTATIN [Concomitant]
  7. PANTOPRAZOL (PANTOPRAZOLE) [Concomitant]
  8. CREAM TERSE (ALL OTHER THERAPEUTIC PRODUCTS) [Concomitant]
  9. SERETIDEL (SERETIDE) [Concomitant]
  10. VENTOLIN [Concomitant]
  11. TEMAZAPAM (TEMAZEPAM) [Concomitant]

REACTIONS (2)
  - ALOPECIA [None]
  - ONYCHOMADESIS [None]
